FAERS Safety Report 15962172 (Version 4)
Quarter: 2019Q2

REPORT INFORMATION
  Report Type: Spontaneous
  Country: US (occurrence: US)
  Receive Date: 20190214
  Receipt Date: 20190415
  Transmission Date: 20190711
  Serious: Yes (Other)
  Sender: FDA-Public Use
  Company Number: US-PFIZER INC-2019056845

PATIENT
  Age: 61 Year
  Sex: Male

DRUGS (1)
  1. DILANTIN [Suspect]
     Active Substance: PHENYTOIN
     Indication: EPILEPSY
     Dosage: 200 MG, 2X/DAY (2 CAPSULES, TOTAL OF 200 MG 2 TIMES DAILY)
     Route: 048
     Dates: start: 20190202

REACTIONS (2)
  - Drug hypersensitivity [Unknown]
  - Seizure [Unknown]
